FAERS Safety Report 11996275 (Version 7)
Quarter: 2018Q4

REPORT INFORMATION
  Report Type: Report from Study
  Country: US (occurrence: US)
  Receive Date: 20160203
  Receipt Date: 20181018
  Transmission Date: 20190204
  Serious: Yes (Hospitalization)
  Sender: FDA-Public Use
  Company Number: US-ACTELION-A-US2016-130693

PATIENT
  Age: 56 Year
  Sex: Female

DRUGS (10)
  1. TRACLEER [Suspect]
     Active Substance: BOSENTAN
     Indication: PULMONARY ARTERIAL HYPERTENSION
     Dosage: 125 MG, BID
     Route: 048
     Dates: start: 20180410
  2. FENTANYL. [Concomitant]
     Active Substance: FENTANYL
     Dosage: 12 MCG/HR PATCH Q 3 DAYS
     Route: 062
  3. PREDNISONE. [Concomitant]
     Active Substance: PREDNISONE
     Dosage: 5 MG, 1 TIME EVERY OTHER DAY
  4. METHADONE [Concomitant]
     Active Substance: METHADONE HYDROCHLORIDE
  5. HUMALOG [Concomitant]
     Active Substance: INSULIN LISPRO
  6. BUSPIRONE [Concomitant]
     Active Substance: BUSPIRONE HYDROCHLORIDE
     Dosage: 15 MG, 1 TO 2 TIMES QD
  7. TRACLEER [Suspect]
     Active Substance: BOSENTAN
     Dosage: 125 MG, BID
     Route: 048
     Dates: start: 20140226
  8. CHOLESTYRAMIN [Concomitant]
     Active Substance: CHOLESTYRAMINE
  9. NARCAN [Concomitant]
     Active Substance: NALOXONE HYDROCHLORIDE
  10. RAYOS [Concomitant]
     Active Substance: PREDNISONE
     Dosage: 2.5 MG, QOD

REACTIONS (15)
  - Blood pressure increased [Unknown]
  - Nasopharyngitis [Unknown]
  - Product dose omission [Recovered/Resolved]
  - Underdose [Recovered/Resolved]
  - Colitis microscopic [Not Recovered/Not Resolved]
  - Headache [Unknown]
  - Bursitis [Unknown]
  - Arthralgia [Not Recovered/Not Resolved]
  - Myalgia [Not Recovered/Not Resolved]
  - Vascular occlusion [Not Recovered/Not Resolved]
  - Nasal congestion [Not Recovered/Not Resolved]
  - Palpitations [Unknown]
  - Blood uric acid increased [Unknown]
  - Bundle branch block right [Not Recovered/Not Resolved]
  - Therapeutic procedure [Recovered/Resolved]

NARRATIVE: CASE EVENT DATE: 20160119
